FAERS Safety Report 20785954 (Version 1)
Quarter: 2022Q2

REPORT INFORMATION
  Report Type: Spontaneous
  Country: US (occurrence: None)
  Receive Date: 20220504
  Receipt Date: 20220504
  Transmission Date: 20220720
  Serious: No
  Sender: FDA-Public Use
  Company Number: US-ROCHE-2980162

PATIENT
  Age: 40 Year
  Sex: Female
  Weight: 46.762 kg

DRUGS (1)
  1. OCREVUS [Suspect]
     Active Substance: OCRELIZUMAB
     Indication: Relapsing multiple sclerosis
     Route: 042

REACTIONS (10)
  - General physical health deterioration [Unknown]
  - Gait disturbance [Unknown]
  - Feeling hot [Unknown]
  - Bedridden [Unknown]
  - Asthenia [Unknown]
  - Muscular weakness [Unknown]
  - Limb deformity [Unknown]
  - Fall [Unknown]
  - Bursitis [Unknown]
  - Muscle spasms [Unknown]

NARRATIVE: CASE EVENT DATE: 20210601
